FAERS Safety Report 6808884-4 (Version None)
Quarter: 2010Q2

REPORT INFORMATION
  Report Type: 
  Country: None (occurrence: None)
  Receive Date: 20100630
  Receipt Date: 20090617
  Transmission Date: 20101027
  Serious: No
  Sender: FDA-Public Use
  Company Number: US-PFIZER INC-A117880

PATIENT
  Sex: Male
  Weight: 109 kg

DRUGS (16)
  1. VIAGRA [Suspect]
     Indication: ERECTILE DYSFUNCTION
     Dosage: 100 MG, AS NEEDED
     Route: 048
     Dates: start: 19990201
  2. PAXIL [Concomitant]
     Route: 048
     Dates: start: 20000228
  3. CARVEDILOL [Concomitant]
     Dosage: UNK
  4. ALLEGRA [Concomitant]
     Dosage: UNK
  5. ALLOPURINOL [Concomitant]
     Dosage: UNK
  6. NASACORT [Concomitant]
     Dosage: UNK
  7. NORVASC [Concomitant]
     Dosage: UNK
  8. LIPITOR [Concomitant]
     Dosage: UNK
  9. NIASPAN [Concomitant]
     Dosage: UNK
  10. ACIPHEX [Concomitant]
     Dosage: UNK
  11. LYRICA [Concomitant]
     Dosage: UNK
  12. CENTRUM SILVER [Concomitant]
     Dosage: UNK
  13. POTASSIUM [Concomitant]
     Dosage: UNK
  14. MINERALS NOS [Concomitant]
     Dosage: UNK
  15. ACETYLSALICYLIC ACID [Concomitant]
     Dosage: UNK
  16. FIBRE, DIETARY [Concomitant]
     Dosage: UNK

REACTIONS (3)
  - DEPRESSION [None]
  - DRUG INEFFECTIVE [None]
  - SELF ESTEEM DECREASED [None]
